FAERS Safety Report 8986525 (Version 1)
Quarter: 2012Q4

REPORT INFORMATION
  Report Type: Report from Study
  Country: US (occurrence: US)
  Receive Date: 20121227
  Receipt Date: 20121227
  Transmission Date: 20130627
  Serious: Yes (Other)
  Sender: FDA-Public Use
  Company Number: US-JNJFOC-20121206988

PATIENT
  Sex: Male
  Weight: 77.11 kg

DRUGS (4)
  1. TYLENOL [Suspect]
     Route: 065
  2. TYLENOL [Suspect]
     Indication: HEADACHE
     Route: 065
     Dates: start: 201011
  3. BENADRYL [Suspect]
     Indication: MULTIPLE ALLERGIES
     Route: 065
  4. COUGH AND COLD PREPARATIONS [Suspect]
     Indication: NASOPHARYNGITIS
     Route: 065
     Dates: start: 201011

REACTIONS (3)
  - Sinus congestion [Recovered/Resolved]
  - Dyspnoea [Recovered/Resolved]
  - Drug administration error [Unknown]
